FAERS Safety Report 7744558-3 (Version None)
Quarter: 2011Q3

REPORT INFORMATION
  Report Type: 
  Country: None (occurrence: None)
  Receive Date: 20110912
  Receipt Date: 20110714
  Transmission Date: 20111222
  Serious: No
  Sender: FDA-Public Use
  Company Number: US-BAYER-2011-083770

PATIENT
  Age: 82 Year
  Sex: Female
  Weight: 55 kg

DRUGS (12)
  1. PHILLIPS' COLON HEALTH [Suspect]
     Dosage: 1 TABLET DAILY
     Route: 048
  2. PREMARIN [Concomitant]
  3. Z-BEC [Concomitant]
  4. VITAMIN A [Concomitant]
  5. FLAX SEED OIL [Concomitant]
  6. SYNTHROID [Concomitant]
  7. POTASSIUM [Concomitant]
  8. VIACTIV [CALCIUM CARBONATE,COLECALCIFEROL,PHYTOMENADIONE] [Concomitant]
  9. FISH OIL [Concomitant]
  10. JANUVIA [Concomitant]
  11. CRESTOR [Concomitant]
  12. PRILOSEC [Concomitant]

REACTIONS (1)
  - ABDOMINAL DISTENSION [None]
